FAERS Safety Report 4594823-6 (Version None)
Quarter: 2005Q1

REPORT INFORMATION
  Report Type: 
  Country: None (occurrence: None)
  Receive Date: 20050224
  Receipt Date: 20031015
  Transmission Date: 20050727
  Serious: Yes (Hospitalization)
  Sender: FDA-Public Use
  Company Number: GXKR2003US00607

PATIENT
  Age: 48 Year
  Sex: Female

DRUGS (4)
  1. FLUOXETINE [Suspect]
     Indication: DEPRESSION
     Dosage: 30 MG,
  2. CALCITRIOL [Concomitant]
  3. SPIRONOLACTONE [Concomitant]
  4. OXYCODONE HCL [Concomitant]

REACTIONS (8)
  - CONFUSIONAL STATE [None]
  - DUODENAL ULCER HAEMORRHAGE [None]
  - GASTROINTESTINAL ULCER HAEMORRHAGE [None]
  - METABOLIC ACIDOSIS [None]
  - PHLEBOTHROMBOSIS [None]
  - PULMONARY EMBOLISM [None]
  - PYREXIA [None]
  - SUBCLAVIAN VEIN THROMBOSIS [None]
